FAERS Safety Report 16784457 (Version 1)
Quarter: 2019Q3

REPORT INFORMATION
  Report Type: Spontaneous
  Country: US (occurrence: US)
  Receive Date: 20190717
  Receipt Date: 20190717
  Transmission Date: 20191005
  Serious: Yes (Hospitalization)
  Sender: FDA-Public Use
  Company Number: None

PATIENT
  Age: 74 Year
  Sex: Male

DRUGS (2)
  1. CISPLATIN. [Suspect]
     Active Substance: CISPLATIN
     Indication: TESTIS CANCER
     Route: 042
     Dates: start: 20190613, end: 20190614
  2. GEMCITABINE. [Suspect]
     Active Substance: GEMCITABINE
     Indication: TESTIS CANCER
     Route: 042
     Dates: start: 20190613, end: 20190619

REACTIONS (11)
  - Fatigue [None]
  - Pancytopenia [None]
  - Dizziness [None]
  - Toxicity to various agents [None]
  - Presyncope [None]
  - Acute kidney injury [None]
  - Deafness [None]
  - Failure to thrive [None]
  - Balance disorder [None]
  - Physical deconditioning [None]
  - Tinnitus [None]

NARRATIVE: CASE EVENT DATE: 20190619
